FAERS Safety Report 8304553-2 (Version None)
Quarter: 2012Q2

REPORT INFORMATION
  Report Type: 
  Country: None (occurrence: None)
  Receive Date: 20120423
  Receipt Date: 20120412
  Transmission Date: 20120825
  Serious: Yes (Hospitalization)
  Sender: FDA-Public Use
  Company Number: JP-GLAXOSMITHKLINE-B0496454A

PATIENT
  Sex: Male
  Weight: 57 kg

DRUGS (13)
  1. REQUIP [Suspect]
     Indication: PARKINSON'S DISEASE
     Route: 048
     Dates: start: 20070529
  2. ARTANE [Concomitant]
     Indication: PARKINSON'S DISEASE
     Route: 048
  3. LEVOFLOXACIN [Concomitant]
     Route: 048
     Dates: end: 20070909
  4. MAGNESIUM OXIDE [Concomitant]
     Route: 048
     Dates: start: 20070821, end: 20070918
  5. DORAL [Concomitant]
     Route: 048
     Dates: end: 20070628
  6. MUCOSTA [Concomitant]
     Route: 048
     Dates: end: 20070927
  7. SODIUM BICARBONATE [Concomitant]
     Route: 048
     Dates: start: 20070821, end: 20070918
  8. DIASTASE [Concomitant]
     Route: 048
     Dates: start: 20070821, end: 20070918
  9. ALMARL [Concomitant]
     Route: 048
  10. PAXIL [Concomitant]
     Indication: DEPRESSION
     Route: 048
  11. SYMMETREL [Concomitant]
     Indication: PARKINSON'S DISEASE
     Route: 048
  12. LENDORMIN [Concomitant]
     Route: 048
     Dates: start: 20070629
  13. AMOXICILLIN [Concomitant]
     Route: 048
     Dates: end: 20070927

REACTIONS (1)
  - INTESTINAL OBSTRUCTION [None]
